FAERS Safety Report 5663870-5 (Version None)
Quarter: 2008Q1

REPORT INFORMATION
  Report Type: 
  Country: None (occurrence: None)
  Receive Date: 20080314
  Receipt Date: 20080306
  Transmission Date: 20080703
  Serious: Yes (Other)
  Sender: FDA-Public Use
  Company Number: GB-TEVA-168428ISR

PATIENT
  Age: 40 Year
  Sex: Male

DRUGS (2)
  1. LAMOTRIGINE [Suspect]
     Indication: EPILEPSY
     Route: 048
  2. WARFARIN SODIUM [Suspect]
     Route: 048
     Dates: start: 20070101

REACTIONS (4)
  - ACCIDENTAL OVERDOSE [None]
  - DRUG INTERACTION [None]
  - INHIBITORY DRUG INTERACTION [None]
  - INTERNATIONAL NORMALISED RATIO INCREASED [None]
